FAERS Safety Report 9031241 (Version 2)
Quarter: 2013Q1

REPORT INFORMATION
  Report Type: Spontaneous
  Country: US (occurrence: US)
  Receive Date: 20130123
  Receipt Date: 20130308
  Transmission Date: 20140127
  Serious: Yes (Hospitalization)
  Sender: FDA-Public Use
  Company Number: US-PFIZER INC-2013027216

PATIENT
  Age: 59 Year
  Sex: Female
  Weight: 73 kg

DRUGS (5)
  1. LYRICA [Suspect]
     Indication: NERVE COMPRESSION
     Dosage: 75 MG, 1X/DAY
     Route: 048
  2. LORTAB [Concomitant]
     Indication: PAIN
     Dosage: UNK
  3. DILTIAZEM [Concomitant]
     Indication: HYPERTENSION
     Dosage: UNK
  4. BENAZEPRIL [Concomitant]
     Indication: HYPERTENSION
     Dosage: UNK, 2X/DAY
  5. HYDROCHLOROTHIAZIDE [Concomitant]
     Indication: HYPERTENSION
     Dosage: UNK, 1X/DAY

REACTIONS (3)
  - Pulmonary congestion [Unknown]
  - Lung infection [Unknown]
  - Dyspnoea [Unknown]
